FAERS Safety Report 7144066-7 (Version None)
Quarter: 2010Q4

REPORT INFORMATION
  Report Type: 
  Country: None (occurrence: None)
  Receive Date: 20101208
  Receipt Date: 20101130
  Transmission Date: 20110411
  Serious: No
  Sender: FDA-Public Use
  Company Number: US-BIOGENIDEC-2010BI042469

PATIENT
  Age: 57 Year
  Sex: Female

DRUGS (3)
  1. AVONEX [Suspect]
     Indication: MULTIPLE SCLEROSIS
     Route: 030
     Dates: start: 20021206, end: 20031010
  2. AVONEX [Suspect]
     Route: 030
     Dates: start: 20100913
  3. AVONEX [Suspect]
     Route: 030
     Dates: start: 20101006

REACTIONS (2)
  - HEADACHE [None]
  - VERTIGO [None]
